FAERS Safety Report 11687480 (Version 1)
Quarter: 2015Q4

REPORT INFORMATION
  Report Type: Spontaneous
  Country: US (occurrence: US)
  Receive Date: 20151030
  Receipt Date: 20151030
  Transmission Date: 20160304
  Serious: Yes (Other)
  Sender: FDA-Public Use
  Company Number: US-BANPHARM-20154333

PATIENT
  Sex: Female

DRUGS (2)
  1. CALCITRIOL CAPSULES 0.5 MCG [Suspect]
     Active Substance: CALCITRIOL
     Indication: THYROIDECTOMY
     Dates: start: 201508
  2. CALCITRIOL CAPSULES 0.25 MCG [Suspect]
     Active Substance: CALCITRIOL
     Indication: PARATHYROID GLAND OPERATION
     Dates: start: 2015

REACTIONS (1)
  - Papillary thyroid cancer [Not Recovered/Not Resolved]

NARRATIVE: CASE EVENT DATE: 2015
